FAERS Safety Report 10570830 (Version 2)
Quarter: 2014Q4

REPORT INFORMATION
  Report Type: Spontaneous
  Country: FR (occurrence: FR)
  Receive Date: 20141107
  Receipt Date: 20141108
  Transmission Date: 20150529
  Serious: Yes (Death, Life-Threatening, Hospitalization, Other)
  Sender: FDA-Public Use
  Company Number: FR-ASTRAZENECA-2014SE82604

PATIENT
  Age: 80 Year
  Sex: Female

DRUGS (11)
  1. TRIATEC [Suspect]
     Active Substance: RAMIPRIL
     Indication: HYPERTENSION
     Route: 048
  2. NEO-MERCAZOLE [Suspect]
     Active Substance: CARBIMAZOLE
     Indication: HYPERTHYROIDISM
     Route: 048
  3. LORAZEPAM. [Suspect]
     Active Substance: LORAZEPAM
     Route: 048
  4. DUOPLAVIN [Suspect]
     Active Substance: ASPIRIN\CLOPIDOGREL
     Indication: ACUTE CORONARY SYNDROME
     Route: 048
  5. ESOMEPRAZOLE [Suspect]
     Active Substance: ESOMEPRAZOLE
     Route: 048
  6. EFFERALGAN [Suspect]
     Active Substance: ACETAMINOPHEN
     Dosage: 3 TO 4 DOSAGE FORMS, DAILY
     Route: 048
  7. TAHOR [Suspect]
     Active Substance: ATORVASTATIN CALCIUM
     Indication: HYPERCHOLESTEROLAEMIA
     Route: 048
  8. CREON [Suspect]
     Active Substance: PANCRELIPASE AMYLASE\PANCRELIPASE LIPASE\PANCRELIPASE PROTEASE
     Indication: PANCREATITIS
     Route: 048
  9. BISOCE [Suspect]
     Active Substance: BISOPROLOL
     Indication: HYPERTENSION
     Route: 048
  10. LASILIX [Suspect]
     Active Substance: FUROSEMIDE
     Indication: HYPERTENSION
     Route: 048
  11. METFORMIN HCL (NON-AZ PRODUCT) [Suspect]
     Active Substance: METFORMIN HYDROCHLORIDE
     Indication: TYPE 2 DIABETES MELLITUS
     Route: 048
     Dates: start: 1996

REACTIONS (21)
  - Blood pressure decreased [Unknown]
  - Hepatic failure [Unknown]
  - Vomiting [Unknown]
  - Overdose [Fatal]
  - Cardiac failure acute [Fatal]
  - Aspartate aminotransferase increased [Unknown]
  - Tachycardia [Unknown]
  - Diarrhoea [Unknown]
  - Multi-organ failure [Fatal]
  - Lactic acidosis [Fatal]
  - Brain natriuretic peptide increased [Unknown]
  - Hepatocellular injury [Unknown]
  - Acute kidney injury [Unknown]
  - Alanine aminotransferase increased [Unknown]
  - Drug level increased [Unknown]
  - Abdominal pain [Unknown]
  - Cardioactive drug level increased [Unknown]
  - Gastrointestinal motility disorder [Unknown]
  - General physical health deterioration [Unknown]
  - Muscle enzyme increased [Unknown]
  - Hyperkalaemia [Unknown]

NARRATIVE: CASE EVENT DATE: 20140930
